FAERS Safety Report 16819468 (Version 4)
Quarter: 2021Q2

REPORT INFORMATION
  Report Type: Spontaneous
  Country: US (occurrence: US)
  Receive Date: 20190917
  Receipt Date: 20210622
  Transmission Date: 20210716
  Serious: Yes (Hospitalization, Other)
  Sender: FDA-Public Use
  Company Number: US-TEVA-2019-US-1088097

PATIENT
  Sex: Female

DRUGS (19)
  1. SYNRIBO [Suspect]
     Active Substance: OMACETAXINE MEPESUCCINATE
     Indication: CHRONIC MYELOID LEUKAEMIA
     Dosage: 2.4MG/0.7ML, FOR 14 DAYS.
     Dates: start: 20190704
  2. DIPHENHYDRAMINE. [Concomitant]
     Active Substance: DIPHENHYDRAMINE
  3. MECLIZINE [Concomitant]
     Active Substance: MECLIZINE HYDROCHLORIDE
  4. TRESIBA [Concomitant]
     Active Substance: INSULIN DEGLUDEC
  5. LISINOPRIL. [Concomitant]
     Active Substance: LISINOPRIL
  6. OMEPRAZOLE. [Concomitant]
     Active Substance: OMEPRAZOLE
  7. FLONASE [Concomitant]
     Active Substance: FLUTICASONE PROPIONATE
  8. HUMALOG [Concomitant]
     Active Substance: INSULIN LISPRO
  9. ONDANSETRON [Concomitant]
     Active Substance: ONDANSETRON
  10. COMPAZINE [Concomitant]
     Active Substance: PROCHLORPERAZINE MALEATE
  11. LEVOTHYROXINE. [Concomitant]
     Active Substance: LEVOTHYROXINE
  12. LIDOCAINE. [Concomitant]
     Active Substance: LIDOCAINE
  13. TASIGNA [Concomitant]
     Active Substance: NILOTINIB
  14. TRESIBA [Concomitant]
     Active Substance: INSULIN DEGLUDEC
  15. MAALOX ANTACID [Concomitant]
     Active Substance: ALUMINUM HYDROXIDE\DIMETHICONE\MAGNESIUM HYDROXIDE
  16. LORATADINE. [Concomitant]
     Active Substance: LORATADINE
  17. SYNRIBO [Suspect]
     Active Substance: OMACETAXINE MEPESUCCINATE
     Dosage: 2.45MG/0.7ML (TWICE DAILY FOR 14 DAYS OF A 28 DAY CYCLE)
     Route: 065
     Dates: start: 20190607
  18. ALBUTEROL. [Concomitant]
     Active Substance: ALBUTEROL
  19. NEURONTIN [Concomitant]
     Active Substance: GABAPENTIN

REACTIONS (6)
  - Asthma [Unknown]
  - Nasopharyngitis [Unknown]
  - Hospitalisation [Unknown]
  - Platelet count increased [Unknown]
  - Cough [Unknown]
  - Therapy interrupted [Unknown]
